FAERS Safety Report 8471667-6 (Version None)
Quarter: 2012Q2

REPORT INFORMATION
  Report Type: 
  Country: None (occurrence: None)
  Receive Date: 20120621
  Receipt Date: 20120529
  Transmission Date: 20120825
  Serious: Yes (Hospitalization, Other)
  Sender: FDA-Public Use
  Company Number: 2012POI057500091

PATIENT
  Age: 30 Year
  Sex: Female

DRUGS (5)
  1. OXYCONTIN [Suspect]
     Indication: PAIN
     Dosage: 240 MG (60 MG,4 IN 1 D),PER ORAL
     Route: 048
  2. WARFARIN SODIUM [Concomitant]
  3. OXYCODONE HYDROCHLORIDE [Suspect]
     Indication: PAIN
     Dosage: 120 MG (20 MG,6 IN 1 D),PER ORAL
     Route: 048
  4. PAROXETINE HCL [Concomitant]
  5. ALPRAZOLAM [Concomitant]

REACTIONS (6)
  - CHEST PAIN [None]
  - HAEMATOMA [None]
  - SYNCOPE [None]
  - HEAD INJURY [None]
  - INTENTIONAL DRUG MISUSE [None]
  - HIP FRACTURE [None]
